FAERS Safety Report 8379179-5 (Version None)
Quarter: 2012Q2

REPORT INFORMATION
  Report Type: 
  Country: None (occurrence: None)
  Receive Date: 20120523
  Receipt Date: 20110317
  Transmission Date: 20120825
  Serious: Yes (Hospitalization)
  Sender: FDA-Public Use
  Company Number: 163-21880-11032199

PATIENT
  Age: 66 Year
  Sex: Male
  Weight: 108.8633 kg

DRUGS (5)
  1. REVLIMID [Suspect]
     Indication: MULTIPLE MYELOMA
     Dosage: 5 MG, DAILY, PO
     Route: 048
     Dates: start: 20110209
  2. CARVEDILOL [Concomitant]
  3. VELCADE [Concomitant]
  4. PLAVIX [Concomitant]
  5. WARFARIN SODIUM [Concomitant]

REACTIONS (4)
  - HYPOTENSION [None]
  - RASH [None]
  - OEDEMA PERIPHERAL [None]
  - THROMBOSIS [None]
